FAERS Safety Report 8025351-3 (Version None)
Quarter: 2012Q1

REPORT INFORMATION
  Report Type: 
  Country: None (occurrence: None)
  Receive Date: 20120105
  Receipt Date: 20120104
  Transmission Date: 20120608
  Serious: Yes (Hospitalization, Other)
  Sender: FDA-Public Use
  Company Number: US-ELI_LILLY_AND_COMPANY-US201112001297

PATIENT
  Sex: Female

DRUGS (1)
  1. HUMALOG [Suspect]
     Indication: TYPE 1 DIABETES MELLITUS
     Dosage: 40 U, QD
     Route: 058
     Dates: start: 20080101

REACTIONS (8)
  - ACIDOSIS [None]
  - INSOMNIA [None]
  - THIRST [None]
  - BLOOD GLUCOSE INCREASED [None]
  - KETOACIDOSIS [None]
  - MEDICATION ERROR [None]
  - DEHYDRATION [None]
  - VOMITING [None]
